FAERS Safety Report 21527844 (Version 1)
Quarter: 2022Q4

REPORT INFORMATION
  Report Type: Spontaneous
  Country: JP (occurrence: JP)
  Receive Date: 20221031
  Receipt Date: 20221031
  Transmission Date: 20230113
  Serious: Yes (Other)
  Sender: FDA-Public Use
  Company Number: JP-GUERBETG_JAPAN-JP-20220172

PATIENT
  Age: 8 Decade
  Sex: Female

DRUGS (2)
  1. LIPIODOL [Suspect]
     Active Substance: ETHIODIZED OIL
     Indication: Sclerotherapy
     Dosage: 2X 1.4 ML OF A MIXTURE OF LIPIODOL AND NBCA
  2. ENBUCRILATE [Suspect]
     Active Substance: ENBUCRILATE
     Indication: Sclerotherapy
     Dosage: 2X 1.4 ML OF A MIXTURE OF LIPIODOL AND NBCA

REACTIONS (2)
  - Sepsis [Recovering/Resolving]
  - Product use in unapproved indication [Recovering/Resolving]
